FAERS Safety Report 10908395 (Version 1)
Quarter: 2015Q1

REPORT INFORMATION
  Report Type: Spontaneous
  Country: US (occurrence: None)
  Receive Date: 20150128
  Receipt Date: 20150128
  Transmission Date: 20150721
  Serious: No
  Sender: FDA-Public Use
  Company Number: 2014TUS014886

PATIENT
  Age: 57 Year
  Sex: Female
  Weight: 68.9 kg

DRUGS (16)
  1. CYCLOBENZAPRINE ??? [Concomitant]
  2. CARVEDILOL. [Concomitant]
     Active Substance: CARVEDILOL
  3. PREMARIN (ESTROGENS CONJUGATED) [Concomitant]
  4. DEXILANT [Concomitant]
     Active Substance: DEXLANSOPRAZOLE
  5. PREMARIN (ESTROGENS CONJUGATED) [Concomitant]
  6. PROMETHAZINE /00033002/ (PROMETHAZINE HYDROCHLORIDE) [Concomitant]
  7. HYDROCODONE [Concomitant]
     Active Substance: HYDROCODONE
  8. CORTEF /00028601/ (HYDROCORTISONE) [Concomitant]
  9. KLORCON (POTASSIUM CHLORIDE) [Concomitant]
  10. ALPRAZOLAM. [Concomitant]
     Active Substance: ALPRAZOLAM
  11. FUROSEMIDE. [Concomitant]
     Active Substance: FUROSEMIDE
  12. HYDROXYZINE [Concomitant]
     Active Substance: HYDROXYZINE\HYDROXYZINE HYDROCHLORIDE
  13. FLORINEF (FLUDROCORTISONE ACETATE) [Concomitant]
  14. LINZESS [Concomitant]
     Active Substance: LINACLOTIDE
  15. LOVASTATIN. [Concomitant]
     Active Substance: LOVASTATIN
  16. BRINTELLIX [Suspect]
     Active Substance: VORTIOXETINE HYDROBROMIDE
     Indication: DEPRESSION
     Route: 048
     Dates: start: 201412

REACTIONS (2)
  - Eating disorder [None]
  - Parosmia [None]
